FAERS Safety Report 25523140 (Version 1)
Quarter: 2025Q3

REPORT INFORMATION
  Report Type: Spontaneous
  Country: US (occurrence: US)
  Receive Date: 20250707
  Receipt Date: 20250707
  Transmission Date: 20251020
  Serious: No
  Sender: SUNOVION
  Company Number: US-SMPA-2025SPA007435AA

PATIENT

DRUGS (1)
  1. GEMTESA [Suspect]
     Active Substance: VIBEGRON
     Indication: Hypertonic bladder
     Dosage: ONCE A DAY; TAKEN WITH A FULL GLASS OF WATER AT 7 PM
     Route: 048
     Dates: start: 2024

REACTIONS (1)
  - Drug ineffective [Unknown]
